FAERS Safety Report 24955582 (Version 3)
Quarter: 2025Q1

REPORT INFORMATION
  Report Type: Spontaneous
  Country: DK (occurrence: DK)
  Receive Date: 20250211
  Receipt Date: 20250228
  Transmission Date: 20250409
  Serious: Yes (Hospitalization)
  Sender: ELI LILLY AND COMPANY
  Company Number: DK-ELI_LILLY_AND_COMPANY-DK202502000736

PATIENT
  Age: 34 Year
  Sex: Male

DRUGS (3)
  1. OMVOH [Suspect]
     Active Substance: MIRIKIZUMAB-MRKZ
     Indication: Colitis ulcerative
     Route: 042
     Dates: start: 20241106
  2. HYDROCORTISONE [Concomitant]
     Active Substance: HYDROCORTISONE
     Indication: Colitis ulcerative
     Dosage: 9 MG, DAILY
     Route: 048
     Dates: start: 20240424, end: 20241227
  3. PIVMECILLINAM HYDROCHLORIDE [Concomitant]
     Active Substance: PIVMECILLINAM HYDROCHLORIDE
     Indication: Urinary tract infection

REACTIONS (2)
  - Pyelonephritis [Not Recovered/Not Resolved]
  - Renal cyst [Unknown]
